FAERS Safety Report 9640365 (Version 2)
Quarter: 2013Q4

REPORT INFORMATION
  Report Type: Spontaneous
  Country: US (occurrence: None)
  Receive Date: 20131021
  Receipt Date: 20131029
  Transmission Date: 20140711
  Serious: Yes (Other)
  Sender: FDA-Public Use
  Company Number: 2013P1020158

PATIENT
  Age: 78 Year
  Sex: Female

DRUGS (3)
  1. LANOXIN [Suspect]
     Indication: ATRIAL FIBRILLATION
     Route: 048
     Dates: start: 1998, end: 20131013
  2. COUMADIN [Concomitant]
  3. ADDITIONAL UNSPECIFIED MEDICATIONS [Concomitant]

REACTIONS (4)
  - Product quality issue [None]
  - Product quality issue [None]
  - Atrial fibrillation [None]
  - Atrial flutter [None]
